FAERS Safety Report 4297139-0 (Version None)
Quarter: 2004Q1

REPORT INFORMATION
  Report Type: 
  Country: None (occurrence: None)
  Receive Date: 20040213
  Receipt Date: 20040203
  Transmission Date: 20041129
  Serious: Yes (Hospitalization)
  Sender: FDA-Public Use
  Company Number: GB-JNJFOC-20040200713

PATIENT
  Age: 61 Year
  Sex: Male

DRUGS (7)
  1. REMICADE [Suspect]
     Indication: RHEUMATOID ARTHRITIS
     Dosage: 200 MG, INTRAVENOUS
     Route: 042
     Dates: start: 20020325
  2. ARTHROTEC [Concomitant]
  3. BENDROFLUAZIDE (BENDROFLUMETHIAZIDE) [Concomitant]
  4. CO-PROXAMOL (APOREX) [Concomitant]
  5. FOLIC ACID [Concomitant]
  6. LANSOPRAZOLE [Concomitant]
  7. METHOTREXATE [Concomitant]

REACTIONS (1)
  - CHOLECYSTECTOMY [None]
